FAERS Safety Report 19286391 (Version 2)
Quarter: 2021Q2

REPORT INFORMATION
  Report Type: Report from Study
  Country: SG (occurrence: SG)
  Receive Date: 20210521
  Receipt Date: 20210527
  Transmission Date: 20210717
  Serious: Yes (Death)
  Sender: FDA-Public Use
  Company Number: SG-KARYOPHARM-2021KPT000671

PATIENT
  Age: 44 Year
  Sex: Female

DRUGS (1)
  1. SELINEXOR [Suspect]
     Active Substance: SELINEXOR
     Indication: PERIPHERAL T-CELL LYMPHOMA UNSPECIFIED
     Dosage: 60 MG, 2X/WEEK
     Route: 048
     Dates: start: 20210208, end: 2021

REACTIONS (3)
  - Nausea [Unknown]
  - Pneumonia [Fatal]
  - Neutropenic sepsis [Fatal]

NARRATIVE: CASE EVENT DATE: 2021
